FAERS Safety Report 5301866-3 (Version None)
Quarter: 2007Q2

REPORT INFORMATION
  Report Type: 
  Country: None (occurrence: None)
  Receive Date: 20070419
  Receipt Date: 20070413
  Transmission Date: 20071010
  Serious: Yes (Hospitalization)
  Sender: FDA-Public Use
  Company Number: IE-ROCHE-483646

PATIENT
  Age: 88 Year
  Sex: Female

DRUGS (2)
  1. BONVIVA [Suspect]
     Indication: ARTHRITIS
     Dosage: THE PATIENT HAD FIVE DOSES OF IBANDRONIC ACID.
     Route: 048
     Dates: end: 20070216
  2. KETOPROFEN [Suspect]
     Indication: ARTHRITIS
     Route: 065

REACTIONS (1)
  - GASTRIC ULCER PERFORATION [None]
